FAERS Safety Report 4540780-8 (Version None)
Quarter: 2004Q4

REPORT INFORMATION
  Report Type: 
  Country: None (occurrence: None)
  Receive Date: 20041222
  Receipt Date: 20041201
  Transmission Date: 20050328
  Serious: Yes (Death, Life-Threatening, Hospitalization, Other)
  Sender: FDA-Public Use
  Company Number: DE_041214820

PATIENT
  Age: 86 Year
  Sex: Female
  Weight: 75 kg

DRUGS (11)
  1. YENTREVE (DULOXETINE HYDROCHLORIDE) [Suspect]
     Indication: URGE INCONTINENCE
     Dosage: 40 MG/2 DAY
     Dates: start: 20041026, end: 20041028
  2. YENTREVE (DULOXETINE HYDROCHLORIDE) [Suspect]
     Indication: URINARY INCONTINENCE
     Dosage: 40 MG/2 DAY
     Dates: start: 20041026, end: 20041028
  3. REMINYL [Concomitant]
  4. PENTAERYTHIRITOL TETRANITRATE TAB [Concomitant]
  5. PLAVIX [Concomitant]
  6. DUSODRIL FORTE (NAFTIDROFURYL OXALATE) [Concomitant]
  7. TORSEMIDE [Concomitant]
  8. ASS ^ISIS^ (ACETYLSALICYLIC ACID) [Concomitant]
  9. RAMIPRIL [Concomitant]
  10. DIGITOXIN TAB [Concomitant]
  11. RANICUX (RANITIDINE HYDROCHLORIDE) [Concomitant]

REACTIONS (13)
  - BLISTER [None]
  - CARDIAC FAILURE [None]
  - ECCHYMOSIS [None]
  - EXCESSIVE GRANULATION TISSUE [None]
  - HAEMORRHAGE [None]
  - LYMPHOCYTE PERCENTAGE DECREASED [None]
  - MEDICATION ERROR [None]
  - NEOPLASM [None]
  - NEUTROPHIL PERCENTAGE INCREASED [None]
  - PETECHIAE [None]
  - PULMONARY OEDEMA [None]
  - SKIN ULCER [None]
  - WHITE BLOOD CELL COUNT INCREASED [None]
